FAERS Safety Report 10332234 (Version 1)
Quarter: 2014Q3

REPORT INFORMATION
  Report Type: Spontaneous
  Country: US (occurrence: None)
  Receive Date: 20140721
  Receipt Date: 20140721
  Transmission Date: 20150326
  Serious: Yes (Hospitalization, Disabling)
  Sender: FDA-Public Use
  Company Number: None

PATIENT
  Age: 37 Year
  Sex: Female
  Weight: 88 kg

DRUGS (1)
  1. HUMIRA [Suspect]
     Active Substance: ADALIMUMAB
     Indication: RHEUMATOID ARTHRITIS
     Dosage: 1 SQ INJECTION EVERY 2 WEEKS EVERY TWO WEEKS GIVEN INTO/UNDER THE SKIN
     Route: 058
     Dates: start: 20140313, end: 20140613

REACTIONS (21)
  - Fatigue [None]
  - Hypoaesthesia [None]
  - Tendon pain [None]
  - Chest pain [None]
  - Dyspnoea [None]
  - Ligament pain [None]
  - Myalgia [None]
  - Burning sensation [None]
  - Erythema [None]
  - Visual impairment [None]
  - Temperature intolerance [None]
  - Lupus-like syndrome [None]
  - Pyrexia [None]
  - Bone pain [None]
  - Malaise [None]
  - Neck pain [None]
  - Bronchitis [None]
  - Pneumonia [None]
  - Headache [None]
  - Arthralgia [None]
  - Pain [None]

NARRATIVE: CASE EVENT DATE: 20140409
